FAERS Safety Report 7594905-0 (Version None)
Quarter: 2011Q3

REPORT INFORMATION
  Report Type: 
  Country: None (occurrence: None)
  Receive Date: 20110707
  Receipt Date: 20110702
  Transmission Date: 20111222
  Serious: No
  Sender: FDA-Public Use
  Company Number: US-TEVA-289274USA

PATIENT
  Sex: Female
  Weight: 56.75 kg

DRUGS (2)
  1. PLAN B ONE-STEP [Suspect]
     Indication: POST COITAL CONTRACEPTION
     Dosage: 1.5 MILLIGRAM;
     Route: 048
     Dates: start: 20110608, end: 20110608
  2. ANTIBIOTIC [Concomitant]
     Indication: STAPHYLOCOCCAL INFECTION

REACTIONS (1)
  - HAEMORRHAGE [None]
